FAERS Safety Report 5220889-6 (Version None)
Quarter: 2007Q1

REPORT INFORMATION
  Report Type: 
  Country: None (occurrence: None)
  Receive Date: 20070126
  Receipt Date: 20070122
  Transmission Date: 20070707
  Serious: Yes (Life-Threatening, Hospitalization)
  Sender: FDA-Public Use
  Company Number: JP-JPN-A200605543

PATIENT
  Age: 74 Year
  Sex: Male

DRUGS (2)
  1. PAXIL [Suspect]
     Indication: DEPRESSION
     Dosage: 10MG PER DAY
     Route: 048
     Dates: start: 20061116, end: 20061214
  2. LORAZEPAM [Concomitant]
     Indication: INSOMNIA
     Dosage: 1MG PER DAY
     Route: 048
     Dates: start: 20061206, end: 20061214

REACTIONS (8)
  - ACTIVATED PARTIAL THROMBOPLASTIN TIME [None]
  - BLOOD FIBRINOGEN DECREASED [None]
  - DISSEMINATED INTRAVASCULAR COAGULATION [None]
  - GASTRIC ULCER [None]
  - HAEMOGLOBIN DECREASED [None]
  - ILEUS [None]
  - PLATELET COUNT DECREASED [None]
  - UPPER GASTROINTESTINAL HAEMORRHAGE [None]
